FAERS Safety Report 19868988 (Version 1)
Quarter: 2021Q3

REPORT INFORMATION
  Report Type: Report from Study
  Country: None (occurrence: US)
  Receive Date: 20210923
  Receipt Date: 20210923
  Transmission Date: 20211014
  Serious: Yes (Other)
  Sender: FDA-Public Use
  Company Number: US-ABBVIE-21K-163-4086506-00

PATIENT

DRUGS (1)
  1. CREON [Suspect]
     Active Substance: PANCRELIPASE AMYLASE\PANCRELIPASE LIPASE\PANCRELIPASE PROTEASE
     Indication: PANCREATIC FAILURE
     Route: 048

REACTIONS (9)
  - Food intolerance [Unknown]
  - Feeling abnormal [Unknown]
  - Blood glucose decreased [Recovered/Resolved]
  - Knee arthroplasty [Unknown]
  - Diabetes mellitus [Unknown]
  - Unevaluable event [Unknown]
  - Pancreatic failure [Unknown]
  - Pain [Unknown]
  - Dyspepsia [Unknown]

NARRATIVE: CASE EVENT DATE: 2021
